FAERS Safety Report 6918875-0 (Version None)
Quarter: 2010Q3

REPORT INFORMATION
  Report Type: 
  Country: None (occurrence: None)
  Receive Date: 20100811
  Receipt Date: 20100621
  Transmission Date: 20110219
  Serious: No
  Sender: FDA-Public Use
  Company Number: US-TYCO HEALTHCARE/MALLINCKRODT-T201001464

PATIENT
  Sex: Female
  Weight: 43.991 kg

DRUGS (8)
  1. PENNSAID [Suspect]
     Indication: ARTHRALGIA
     Dosage: UNK
     Dates: start: 20100611, end: 20100611
  2. TOPROL-XL [Concomitant]
     Indication: BLOOD PRESSURE INCREASED
     Dosage: 50 MG, QD
     Route: 048
  3. AMLODIPINE [Concomitant]
     Indication: BLOOD PRESSURE INCREASED
     Dosage: 2.5 MG, QD
     Route: 048
  4. ISOSORBIDE [Concomitant]
     Indication: BLOOD PRESSURE INCREASED
     Dosage: 30 MG, QD
     Route: 048
  5. VITAMIN B-12 [Concomitant]
     Indication: VITAMIN SUPPLEMENTATION
     Dosage: 1 ML, Q 2 WEEKS
     Route: 030
  6. MULTI-VIT [Concomitant]
     Indication: VITAMIN SUPPLEMENTATION
     Dosage: 1 TABLET, QD
     Route: 048
  7. MULTI-VIT [Concomitant]
     Dosage: UNK, QD
     Route: 048
  8. FERROUS SULFATE [Concomitant]
     Indication: MINERAL SUPPLEMENTATION
     Dosage: 1 TABLET, QD
     Route: 048

REACTIONS (8)
  - ASTHENIA [None]
  - DIARRHOEA [None]
  - FEELING HOT [None]
  - FLATULENCE [None]
  - HEADACHE [None]
  - NAUSEA [None]
  - NECK PAIN [None]
  - OFF LABEL USE [None]
